FAERS Safety Report 24037316 (Version 3)
Quarter: 2024Q3

REPORT INFORMATION
  Report Type: Report from Study
  Country: JP (occurrence: JP)
  Receive Date: 20240702
  Receipt Date: 20240710
  Transmission Date: 20241016
  Serious: Yes (Hospitalization, Other)
  Sender: ABBVIE
  Company Number: JP-GSKJP-JP2024JPN079232

PATIENT
  Age: 64 Year
  Sex: Female
  Weight: 66 kg

DRUGS (12)
  1. BOTULINUM TOXIN TYPE A [Suspect]
     Active Substance: BOTULINUM TOXIN TYPE A
     Indication: Muscle spasms
     Dosage: TIME INTERVAL: AS NECESSARY: 500 IU, SINGLE
     Route: 030
     Dates: start: 20240131, end: 20240131
  2. BOTULINUM TOXIN TYPE A [Suspect]
     Active Substance: BOTULINUM TOXIN TYPE A
     Indication: Muscle spasms
     Dosage: TIME INTERVAL: AS NECESSARY: 500 IU, SINGLE
     Route: 030
     Dates: start: 20230802, end: 20230802
  3. LEVOTHYROXINE SODIUM [Concomitant]
     Active Substance: LEVOTHYROXINE SODIUM
     Indication: Product used for unknown indication
     Dosage: UNK
  4. LEVOTHYROXINE SODIUM [Concomitant]
     Active Substance: LEVOTHYROXINE SODIUM
     Indication: Product used for unknown indication
     Route: 065
  5. PREGABALIN [Concomitant]
     Active Substance: PREGABALIN
     Indication: Product used for unknown indication
     Dosage: UNK
  6. PREGABALIN [Concomitant]
     Active Substance: PREGABALIN
     Indication: Product used for unknown indication
     Route: 065
  7. PITAVASTATIN CALCIUM [Concomitant]
     Active Substance: PITAVASTATIN CALCIUM
     Indication: Product used for unknown indication
     Dosage: UNK
  8. DULOXETINE [Concomitant]
     Active Substance: DULOXETINE
     Indication: Product used for unknown indication
     Dosage: UNK
  9. DULOXETINE [Concomitant]
     Active Substance: DULOXETINE
     Indication: Product used for unknown indication
     Route: 065
  10. LANSOPRAZOLE [Concomitant]
     Active Substance: LANSOPRAZOLE
     Indication: Product used for unknown indication
     Dosage: UNK
  11. LANSOPRAZOLE [Concomitant]
     Active Substance: LANSOPRAZOLE
     Indication: Product used for unknown indication
     Route: 065
  12. MOVICOL [Concomitant]
     Active Substance: POLYETHYLENE GLYCOL 3350\POTASSIUM CHLORIDE\SODIUM BICARBONATE\SODIUM CHLORIDE
     Indication: Product used for unknown indication
     Dosage: UNK

REACTIONS (2)
  - Craniofacial fracture [Recovering/Resolving]
  - Craniofacial fracture [Recovering/Resolving]

NARRATIVE: CASE EVENT DATE: 20230829
